FAERS Safety Report 5566866-7 (Version None)
Quarter: 2007Q4

REPORT INFORMATION
  Report Type: 
  Country: None (occurrence: None)
  Receive Date: 20071219
  Receipt Date: 20070913
  Transmission Date: 20080405
  Serious: No
  Sender: FDA-Public Use
  Company Number: US-ABBOTT-07P-163-0417299-00

PATIENT
  Sex: Male

DRUGS (2)
  1. NIMBEX [Suspect]
     Indication: GENERAL ANAESTHESIA
     Route: 042
     Dates: start: 20070912, end: 20070912
  2. NIMBEX [Suspect]
     Indication: CORONARY ARTERY BYPASS

REACTIONS (1)
  - DRUG INEFFECTIVE [None]
